FAERS Safety Report 4596263-2 (Version None)
Quarter: 2005Q1

REPORT INFORMATION
  Report Type: 
  Country: None (occurrence: None)
  Receive Date: 20050224
  Receipt Date: 20050214
  Transmission Date: 20050727
  Serious: Yes (Hospitalization)
  Sender: FDA-Public Use
  Company Number: 2005AC00283

PATIENT
  Age: 74 Year
  Sex: Female

DRUGS (13)
  1. LISINOPRIL [Suspect]
     Dosage: 20 MG DAILY PO
     Route: 048
  2. LISINOPRIL [Suspect]
     Dosage: 30 MG DAILY PO
     Route: 048
  3. IRBESARTAN [Suspect]
     Indication: HYPERTENSION
     Dosage: 300 MG DAILY
  4. RISPERIDONE [Suspect]
     Dosage: 0.25 MG BID
  5. LITHIUM [Suspect]
     Dosage: 250 MG TID
  6. ESCITALOPRAM OXALATE [Suspect]
     Dosage: 10 MG DAILY
  7. LEVOMEPROMAZINE [Suspect]
     Dosage: 6.25 MG DAILY
  8. SPIRONOLACTONE [Suspect]
     Dosage: 50 MG DAILY
  9. FUROSEMIDE [Suspect]
     Dosage: 30 MG DAILY
  10. DEXETIMIDE [Concomitant]
  11. LORMETAZEPAM [Concomitant]
  12. METFORMIN [Concomitant]
  13. REPAGLINIDE [Concomitant]

REACTIONS (16)
  - AGITATION [None]
  - ANTIPSYCHOTIC DRUG LEVEL ABOVE THERAPEUTIC [None]
  - APATHY [None]
  - BLOOD CREATININE INCREASED [None]
  - CONFUSIONAL STATE [None]
  - DEHYDRATION [None]
  - DRUG INTERACTION [None]
  - DRUG LEVEL ABOVE THERAPEUTIC [None]
  - DYSARTHRIA [None]
  - NERVOUS SYSTEM DISORDER [None]
  - NEUROTOXICITY [None]
  - OLIGURIA [None]
  - OVERDOSE [None]
  - SOMNOLENCE [None]
  - THERAPEUTIC AGENT TOXICITY [None]
  - TREMOR [None]
